FAERS Safety Report 21760452 (Version 1)
Quarter: 2022Q4

REPORT INFORMATION
  Report Type: Spontaneous
  Country: HR (occurrence: HR)
  Receive Date: 20221221
  Receipt Date: 20221221
  Transmission Date: 20230113
  Serious: Yes (Hospitalization, Other)
  Sender: FDA-Public Use
  Company Number: HR-SA-SAC20221219001378

PATIENT
  Age: 62 Year
  Sex: Male

DRUGS (2)
  1. MYOZYME [Suspect]
     Active Substance: ALGLUCOSIDASE ALFA
     Indication: Glycogen storage disease type II
     Dosage: UNK
     Route: 042
     Dates: start: 2019, end: 202011
  2. MYOZYME [Suspect]
     Active Substance: ALGLUCOSIDASE ALFA
     Dosage: UNK
     Route: 041
     Dates: start: 20221124

REACTIONS (23)
  - Pulmonary embolism [Recovered/Resolved]
  - Feeling abnormal [Recovered/Resolved]
  - Dyskinesia [Recovered/Resolved]
  - Oxygen saturation decreased [Recovered/Resolved]
  - Asphyxia [Recovered/Resolved]
  - Cyanosis [Recovered/Resolved]
  - Hypopnoea [Recovered/Resolved]
  - Crepitations [Recovered/Resolved]
  - Vena cava thrombosis [Recovered/Resolved]
  - Subclavian vein thrombosis [Recovered/Resolved]
  - Brachiocephalic vein thrombosis [Recovered/Resolved]
  - Psoriatic arthropathy [Recovered/Resolved]
  - Jugular vein thrombosis [Recovered/Resolved]
  - Psoriasis [Recovered/Resolved]
  - Renal neoplasm [Unknown]
  - Axillary vein thrombosis [Recovered/Resolved]
  - Confusional state [Recovered/Resolved]
  - Blood glucose increased [Unknown]
  - Pruritus [Recovered/Resolved]
  - Rash [Recovered/Resolved]
  - Erythema [Recovered/Resolved]
  - Blood pressure decreased [Recovered/Resolved]
  - Heart rate increased [Recovered/Resolved]

NARRATIVE: CASE EVENT DATE: 20221101
